FAERS Safety Report 9139467 (Version 1)
Quarter: 2013Q1

REPORT INFORMATION
  Report Type: Spontaneous
  Country: KR (occurrence: KR)
  Receive Date: 20130305
  Receipt Date: 20130305
  Transmission Date: 20140127
  Serious: No
  Sender: FDA-Public Use
  Company Number: KR-JNJFOC-20130211279

PATIENT
  Sex: Male

DRUGS (1)
  1. DUROGESIC D-TRANS [Suspect]
     Indication: PRODUCT USED FOR UNKNOWN INDICATION
     Route: 062

REACTIONS (2)
  - Drug administration error [Unknown]
  - Dizziness [Unknown]
